FAERS Safety Report 19065415 (Version 40)
Quarter: 2025Q1

REPORT INFORMATION
  Report Type: Report from Study
  Country: US (occurrence: US)
  Receive Date: 20210327
  Receipt Date: 20250317
  Transmission Date: 20250408
  Serious: Yes (Hospitalization, Other)
  Sender: TAKEDA
  Company Number: US-TAKEDA-2021TUS018157

PATIENT
  Age: 35 Year
  Sex: Female
  Weight: 61 kg

DRUGS (65)
  1. HUMAN IMMUNOGLOBULIN G [Suspect]
     Active Substance: HUMAN IMMUNOGLOBULIN G
     Indication: Immunodeficiency common variable
     Dosage: 25 GRAM, 1/WEEK
     Dates: start: 20210204
  2. HUMAN IMMUNOGLOBULIN G [Suspect]
     Active Substance: HUMAN IMMUNOGLOBULIN G
     Dosage: 35 GRAM, Q4WEEKS
     Dates: start: 20210206
  3. HUMAN IMMUNOGLOBULIN G [Suspect]
     Active Substance: HUMAN IMMUNOGLOBULIN G
     Dosage: 25 GRAM, 1/WEEK
  4. HUMAN IMMUNOGLOBULIN G [Suspect]
     Active Substance: HUMAN IMMUNOGLOBULIN G
     Dosage: 45 GRAM, Q3WEEKS
  5. HUMAN IMMUNOGLOBULIN G [Suspect]
     Active Substance: HUMAN IMMUNOGLOBULIN G
     Dosage: 55 GRAM, Q3WEEKS
  6. HUMAN IMMUNOGLOBULIN G [Suspect]
     Active Substance: HUMAN IMMUNOGLOBULIN G
     Dosage: 20 GRAM, Q3WEEKS
  7. HUMAN IMMUNOGLOBULIN G [Suspect]
     Active Substance: HUMAN IMMUNOGLOBULIN G
  8. HUMAN IMMUNOGLOBULIN G [Suspect]
     Active Substance: HUMAN IMMUNOGLOBULIN G
     Dosage: 20 GRAM, 1/WEEK
  9. HUMAN IMMUNOGLOBULIN G [Suspect]
     Active Substance: HUMAN IMMUNOGLOBULIN G
     Dosage: 25 GRAM, 1/WEEK
  10. HUMAN IMMUNOGLOBULIN G [Suspect]
     Active Substance: HUMAN IMMUNOGLOBULIN G
     Dosage: UNK UNK, 1/WEEK
  11. HUMAN IMMUNOGLOBULIN G [Suspect]
     Active Substance: HUMAN IMMUNOGLOBULIN G
     Dosage: 30 GRAM, 1/WEEK
  12. HUMAN IMMUNOGLOBULIN G [Suspect]
     Active Substance: HUMAN IMMUNOGLOBULIN G
     Dosage: 30 GRAM, Q2WEEKS
  13. CARAFATE [Suspect]
     Active Substance: SUCRALFATE
     Indication: Product used for unknown indication
  14. INSULIN NOS [Suspect]
     Active Substance: INSULIN NOS
     Indication: Product used for unknown indication
  15. ACETAMINOPHEN [Concomitant]
     Active Substance: ACETAMINOPHEN
  16. DIPHENHYDRAMINE HYDROCHLORIDE [Concomitant]
     Active Substance: DIPHENHYDRAMINE HYDROCHLORIDE
  17. LIDOCAINE [Concomitant]
     Active Substance: LIDOCAINE
  18. LORATADINE [Concomitant]
     Active Substance: LORATADINE
  19. SODIUM CHLORIDE [Concomitant]
     Active Substance: SODIUM CHLORIDE
  20. SODIUM CHLORIDE [Concomitant]
     Active Substance: SODIUM CHLORIDE
  21. EPINEPHRINE [Concomitant]
     Active Substance: EPINEPHRINE
  22. PREDNISONE [Concomitant]
     Active Substance: PREDNISONE
  23. METHOCARBAMOL [Concomitant]
     Active Substance: METHOCARBAMOL
  24. LEVOTHYROXINE SODIUM [Concomitant]
     Active Substance: LEVOTHYROXINE SODIUM
  25. LIOTHYRONINE SODIUM [Concomitant]
     Active Substance: LIOTHYRONINE SODIUM
  26. POTASSIUM CHLORIDE [Concomitant]
     Active Substance: POTASSIUM CHLORIDE
  27. PROPRANOLOL HYDROCHLORIDE [Concomitant]
     Active Substance: PROPRANOLOL HYDROCHLORIDE
  28. ALEVE [Concomitant]
     Active Substance: NAPROXEN SODIUM
  29. AZITHROMYCIN [Concomitant]
     Active Substance: AZITHROMYCIN
  30. FLUCONAZOLE [Concomitant]
     Active Substance: FLUCONAZOLE
  31. ONDANSETRON HYDROCHLORIDE [Concomitant]
     Active Substance: ONDANSETRON HYDROCHLORIDE
  32. DIAZEPAM [Concomitant]
     Active Substance: DIAZEPAM
  33. VITAMIN D3 [Concomitant]
     Active Substance: CHOLECALCIFEROL
  34. FISH OIL [Concomitant]
     Active Substance: FISH OIL
  35. MAGNESIUM [Concomitant]
     Active Substance: MAGNESIUM
  36. BUSPIRONE HCL [Concomitant]
     Active Substance: BUSPIRONE HYDROCHLORIDE
  37. TRILEPTAL [Concomitant]
     Active Substance: OXCARBAZEPINE
  38. ATIVAN [Concomitant]
     Active Substance: LORAZEPAM
  39. FLUOXETINE HYDROCHLORIDE [Concomitant]
     Active Substance: FLUOXETINE HYDROCHLORIDE
  40. HYDROXYZINE HYDROCHLORIDE [Concomitant]
     Active Substance: HYDROXYZINE HYDROCHLORIDE
  41. FOCALIN [Concomitant]
     Active Substance: DEXMETHYLPHENIDATE HYDROCHLORIDE
  42. REGULOID [Concomitant]
     Active Substance: PSYLLIUM HUSK
  43. DEXTROSE [Concomitant]
     Active Substance: DEXTROSE MONOHYDRATE
  44. METOPROLOL SUCCINATE [Concomitant]
     Active Substance: METOPROLOL SUCCINATE
  45. ONDANSETRON [Concomitant]
     Active Substance: ONDANSETRON
  46. HEPARIN [Concomitant]
     Active Substance: HEPARIN SODIUM
  47. METAMUCIL [Concomitant]
     Active Substance: PLANTAGO SEED
  48. HERBALS\TURMERIC [Concomitant]
     Active Substance: HERBALS\TURMERIC
  49. BIOTIN [Concomitant]
     Active Substance: BIOTIN
  50. POTASSIUM [Concomitant]
     Active Substance: POTASSIUM
  51. PRAZOSIN HYDROCHLORIDE [Concomitant]
     Active Substance: PRAZOSIN HYDROCHLORIDE
  52. DIPHENHYDRAMINE [Concomitant]
     Active Substance: DIPHENHYDRAMINE
  53. REMERON [Concomitant]
     Active Substance: MIRTAZAPINE
  54. METOPROLOL [Concomitant]
     Active Substance: METOPROLOL
  55. FUROSEMIDE [Concomitant]
     Active Substance: FUROSEMIDE
  56. LEVOTHYROXINE [Concomitant]
     Active Substance: LEVOTHYROXINE
  57. JANUVIA [Concomitant]
     Active Substance: SITAGLIPTIN PHOSPHATE
  58. LIOTHYRONINE [Concomitant]
     Active Substance: LIOTHYRONINE
  59. PROPRANOLOL [Concomitant]
     Active Substance: PROPRANOLOL HYDROCHLORIDE
  60. BUSPIRONE [Concomitant]
     Active Substance: BUSPIRONE HYDROCHLORIDE
  61. HYDROXYZINE [Concomitant]
     Active Substance: HYDROXYZINE HYDROCHLORIDE
  62. FLUOXETINE [Concomitant]
     Active Substance: FLUOXETINE HYDROCHLORIDE
  63. DOXYCYCLINE HYCLATE [Concomitant]
     Active Substance: DOXYCYCLINE HYCLATE
  64. ADIPEX-P [Concomitant]
     Active Substance: PHENTERMINE HYDROCHLORIDE
  65. GABAPENTIN [Concomitant]
     Active Substance: GABAPENTIN

REACTIONS (78)
  - Myasthenia gravis [Unknown]
  - Stiff person syndrome [Unknown]
  - Hepatitis B [Unknown]
  - Intestinal obstruction [Unknown]
  - Full blood count abnormal [Unknown]
  - Epilepsy [Unknown]
  - Depressed level of consciousness [Recovered/Resolved]
  - Autoimmune thyroiditis [Unknown]
  - Seizure [Unknown]
  - Hepatic enzyme increased [Unknown]
  - Abdominal pain [Unknown]
  - Fatigue [Recovered/Resolved]
  - Skin abrasion [Recovering/Resolving]
  - Blood glucose abnormal [Unknown]
  - Generalised oedema [Unknown]
  - Face oedema [Unknown]
  - Swelling face [Unknown]
  - Ocular discomfort [Unknown]
  - Asthenopia [Unknown]
  - COVID-19 [Unknown]
  - Illness [Unknown]
  - Rash macular [Unknown]
  - Ear infection [Unknown]
  - Blood pressure abnormal [Unknown]
  - Head discomfort [Unknown]
  - Overgrowth bacterial [Unknown]
  - Ulcer [Unknown]
  - Infusion related reaction [Unknown]
  - Cystitis [Unknown]
  - Sinus headache [Unknown]
  - Sinus congestion [Unknown]
  - Gait disturbance [Unknown]
  - Fall [Recovering/Resolving]
  - Gastrointestinal disorder [Unknown]
  - Insurance issue [Unknown]
  - Postural orthostatic tachycardia syndrome [Unknown]
  - Nasopharyngitis [Not Recovered/Not Resolved]
  - Drug hypersensitivity [Unknown]
  - Respiratory tract infection [Unknown]
  - Blood pressure decreased [Unknown]
  - Insulin resistance [Unknown]
  - Weight increased [Unknown]
  - Weight decreased [Unknown]
  - Weight fluctuation [Unknown]
  - Product dose omission issue [Unknown]
  - Product use issue [Unknown]
  - Incorrect drug administration rate [Unknown]
  - Inappropriate schedule of product administration [Unknown]
  - Urinary tract infection [Unknown]
  - Procedural hypotension [Unknown]
  - Feeling abnormal [Unknown]
  - Sinusitis [Unknown]
  - Hypoaesthesia [Unknown]
  - Throat tightness [Unknown]
  - Pain [Unknown]
  - Asthenia [Unknown]
  - Contusion [Unknown]
  - Rhinorrhoea [Unknown]
  - Oropharyngeal pain [Unknown]
  - Muscular weakness [Unknown]
  - Lethargy [Unknown]
  - Erythema [Unknown]
  - Tremor [Unknown]
  - Rash [Unknown]
  - Dyspnoea [Unknown]
  - Chest discomfort [Unknown]
  - Feeling hot [Recovering/Resolving]
  - Oedema peripheral [Unknown]
  - Hypertension [Unknown]
  - Malaise [Unknown]
  - Oedema [Unknown]
  - Blood pressure increased [Unknown]
  - Vomiting [Unknown]
  - Pyrexia [Unknown]
  - Headache [Recovered/Resolved]
  - Nausea [Unknown]
  - Dizziness [Recovering/Resolving]
  - Hypotension [Unknown]

NARRATIVE: CASE EVENT DATE: 20220601
